FAERS Safety Report 7518364-9 (Version None)
Quarter: 2011Q2

REPORT INFORMATION
  Report Type: 
  Country: None (occurrence: None)
  Receive Date: 20110602
  Receipt Date: 20100108
  Transmission Date: 20111010
  Serious: Yes (Death, Other)
  Sender: FDA-Public Use
  Company Number: US-BAYER-201010278NA

PATIENT
  Age: 65 Year
  Weight: 81 kg

DRUGS (10)
  1. TRASYLOL [Suspect]
     Indication: CORONARY ENDARTERECTOMY
  2. PLAVIX [Concomitant]
     Route: 048
  3. ACETYLSALICYLIC ACID SRT [Concomitant]
     Route: 048
  4. TOPROL-XL [Concomitant]
     Route: 048
  5. INSULIN [Concomitant]
     Route: 058
  6. HEPARIN [Concomitant]
     Dosage: 5000 U, UNK
     Route: 042
     Dates: start: 20041208
  7. NITROGLYCERIN [Concomitant]
     Dosage: UNK
     Route: 042
     Dates: start: 20041208
  8. MANNITOL [Concomitant]
     Dosage: 25 G, UNK
     Route: 042
     Dates: start: 20041208
  9. DOBUTAMIN [Concomitant]
     Dosage: UNK
     Route: 042
     Dates: start: 20041208
  10. TRASYLOL [Suspect]
     Indication: CORONARY ARTERY BYPASS
     Dosage: 200 ML PRIME
     Route: 042
     Dates: start: 20041208, end: 20041208

REACTIONS (12)
  - ANHEDONIA [None]
  - RENAL FAILURE [None]
  - FEAR [None]
  - PAIN [None]
  - DEATH [None]
  - UNEVALUABLE EVENT [None]
  - RENAL INJURY [None]
  - RENAL IMPAIRMENT [None]
  - EMOTIONAL DISTRESS [None]
  - STRESS [None]
  - ANXIETY [None]
  - INJURY [None]
